FAERS Safety Report 6064746-4 (Version None)
Quarter: 2009Q1

REPORT INFORMATION
  Report Type: 
  Country: None (occurrence: None)
  Receive Date: 20090204
  Receipt Date: 20081002
  Transmission Date: 20090719
  Serious: No
  Sender: FDA-Public Use
  Company Number: A0750276A

PATIENT
  Age: 62 Year
  Sex: Male

DRUGS (5)
  1. ARIXTRA [Suspect]
     Indication: DEEP VEIN THROMBOSIS
     Route: 058
     Dates: start: 20080930
  2. ASPIRIN [Concomitant]
  3. ONE A DAY [Concomitant]
     Route: 048
  4. CHOLESTEROL REDUCING AGENT [Concomitant]
  5. COUMADIN [Concomitant]

REACTIONS (1)
  - INJECTION SITE HAEMATOMA [None]
